FAERS Safety Report 19041603 (Version 3)
Quarter: 2021Q4

REPORT INFORMATION
  Report Type: Spontaneous
  Country: FR (occurrence: None)
  Receive Date: 20210322
  Receipt Date: 20211203
  Transmission Date: 20220303
  Serious: Yes (Other)
  Sender: FDA-Public Use
  Company Number: None

PATIENT
  Age: 62 Year
  Sex: Female

DRUGS (20)
  1. ONDANSETRON [Suspect]
     Active Substance: ONDANSETRON
     Indication: Nausea
     Dosage: 48 MG IN TOTAL
     Route: 048
     Dates: start: 20201022, end: 20201103
  2. ONDANSETRON [Suspect]
     Active Substance: ONDANSETRON
     Indication: Fistula
     Route: 041
     Dates: start: 20201022, end: 20201103
  3. ONDANSETRON [Suspect]
     Active Substance: ONDANSETRON
     Dosage: UNK
     Route: 048
     Dates: start: 20210924
  4. LINEZOLID [Suspect]
     Active Substance: LINEZOLID
     Indication: Sepsis
     Dosage: 1200 MG 1X/DAY
     Route: 048
     Dates: start: 20201022, end: 20201027
  5. LINEZOLID [Suspect]
     Active Substance: LINEZOLID
     Dosage: 1200 MG 1X/DAY
     Route: 041
     Dates: start: 20201022, end: 20211027
  6. FLUCONAZOLE [Suspect]
     Active Substance: FLUCONAZOLE
     Indication: Sepsis
     Dosage: 400 MG 1X/DAY
     Route: 041
     Dates: start: 20201022, end: 20201028
  7. FLUCONAZOLE [Suspect]
     Active Substance: FLUCONAZOLE
     Dosage: CUMULATIVE DOSE TO FIRST REACTION:	1600 MG ?DURATION OF DRUG ADMINISTRATION:	7 DAYS
     Route: 065
  8. MEROPENEM [Suspect]
     Active Substance: MEROPENEM
     Indication: Sepsis
     Dosage: UNK
     Route: 041
     Dates: start: 20201006, end: 20201020
  9. DOMPERIDONE [Suspect]
     Active Substance: DOMPERIDONE
     Indication: Nausea
     Dosage: IF NEEDED
     Route: 048
     Dates: start: 20201022
  10. DOMPERIDONE [Suspect]
     Active Substance: DOMPERIDONE
     Dosage: UNK
     Route: 048
     Dates: start: 20201022
  11. OCTREOTIDE [Suspect]
     Active Substance: OCTREOTIDE
     Indication: Fistula
     Dosage: 600 MCG 1X/DAY
     Route: 041
     Dates: start: 20200924, end: 20201025
  12. OCTREOTIDE [Suspect]
     Active Substance: OCTREOTIDE
     Dosage: CUMULATIVE DOSE TO FIRST REACTION:	19200 UG
     Route: 048
     Dates: start: 20200924
  13. PANTOPRAZOLE [Suspect]
     Active Substance: PANTOPRAZOLE
     Indication: Product used for unknown indication
     Dosage: 40 MG 1X/DAY
     Route: 048
     Dates: start: 20200924, end: 20201025
  14. PANTOPRAZOLE [Suspect]
     Active Substance: PANTOPRAZOLE
     Dosage: UNK
     Route: 048
     Dates: start: 20200924
  15. PIPERACILLIN SODIUM\TAZOBACTAM SODIUM [Suspect]
     Active Substance: PIPERACILLIN SODIUM\TAZOBACTAM SODIUM
     Indication: Product used for unknown indication
     Dosage: 4G/500MG 2/DAY
     Route: 048
     Dates: start: 20200926, end: 20201006
  16. PIPERACILLIN SODIUM\TAZOBACTAM SODIUM [Suspect]
     Active Substance: PIPERACILLIN SODIUM\TAZOBACTAM SODIUM
     Dosage: UNK
     Route: 065
  17. MICAFUNGIN SODIUM [Suspect]
     Active Substance: MICAFUNGIN SODIUM
     Indication: Candida sepsis
     Dosage: 100 MG 1X/DAY
     Route: 041
     Dates: start: 20201006, end: 20201022
  18. PIPERACILLIN [Suspect]
     Active Substance: PIPERACILLIN
     Indication: Sepsis
     Dosage: UNK
     Route: 041
     Dates: start: 20200926, end: 20201022
  19. VANCOMYCIN [Suspect]
     Active Substance: VANCOMYCIN
     Indication: Infection
     Dosage: 2 G 1X/DAY
     Route: 041
     Dates: start: 20200926, end: 20201006
  20. TAZOBACTAM [Suspect]
     Active Substance: TAZOBACTAM
     Indication: Sepsis
     Dosage: UNK
     Route: 041
     Dates: start: 20200926, end: 20201022

REACTIONS (4)
  - Rash morbilliform [Not Recovered/Not Resolved]
  - Dermatitis exfoliative generalised [Not Recovered/Not Resolved]
  - Product use issue [Unknown]
  - Off label use [Unknown]

NARRATIVE: CASE EVENT DATE: 20201025
